FAERS Safety Report 5165541-0 (Version None)
Quarter: 2006Q4

REPORT INFORMATION
  Report Type: 
  Country: None (occurrence: None)
  Receive Date: 20061206
  Receipt Date: 20061127
  Transmission Date: 20070319
  Serious: Yes (Other)
  Sender: FDA-Public Use
  Company Number: HU-ROCHE-472715

PATIENT
  Age: 15 Year
  Sex: Male

DRUGS (2)
  1. ROACCUTAN [Suspect]
     Indication: ACNE CONGLOBATA
     Route: 048
     Dates: start: 20061118, end: 20061123
  2. ROACCUTAN [Suspect]
     Route: 048
     Dates: start: 20061124

REACTIONS (2)
  - BONE PAIN [None]
  - DECREASED ACTIVITY [None]
